FAERS Safety Report 8027763-0 (Version None)
Quarter: 2012Q1

REPORT INFORMATION
  Report Type: 
  Country: None (occurrence: None)
  Receive Date: 20120106
  Receipt Date: 20120106
  Transmission Date: 20120608
  Serious: Yes (Other)
  Sender: FDA-Public Use
  Company Number: None

PATIENT
  Age: 43 Year
  Sex: Male
  Weight: 79.378 kg

DRUGS (1)
  1. LARIAM [Suspect]
     Indication: MALARIA PROPHYLAXIS
     Dosage: 250MG
     Route: 048
     Dates: start: 20020301, end: 20021115

REACTIONS (14)
  - ABNORMAL DREAMS [None]
  - HALLUCINATION, VISUAL [None]
  - PRODUCT CONTAMINATION [None]
  - BALANCE DISORDER [None]
  - DIPLOPIA [None]
  - EMOTIONAL POVERTY [None]
  - POOR QUALITY DRUG ADMINISTERED [None]
  - PRODUCT QUALITY ISSUE [None]
  - COORDINATION ABNORMAL [None]
  - SOCIAL PROBLEM [None]
  - PSYCHOTIC DISORDER [None]
  - SLEEP DISORDER [None]
  - NIGHTMARE [None]
  - BRAIN INJURY [None]
